FAERS Safety Report 4471370-3 (Version None)
Quarter: 2004Q4

REPORT INFORMATION
  Report Type: 
  Country: None (occurrence: None)
  Receive Date: 20041006
  Receipt Date: 20040927
  Transmission Date: 20050328
  Serious: Yes (Hospitalization)
  Sender: FDA-Public Use
  Company Number: K200401470

PATIENT
  Age: 25 Year
  Sex: Female
  Weight: 54.4 kg

DRUGS (5)
  1. SONATA (ZALEPLON)10 MG [Suspect]
     Indication: SLEEP DISORDER
     Dosage: SEE IMAGE
     Route: 048
     Dates: start: 20020101, end: 20030101
  2. SONATA (ZALEPLON)10 MG [Suspect]
     Indication: SLEEP DISORDER
     Dosage: SEE IMAGE
     Route: 048
     Dates: start: 20030101
  3. KETALAR [Suspect]
     Dosage: SINGLE
     Dates: start: 20040101, end: 20040101
  4. LORTAB [Suspect]
     Indication: PAIN
     Dosage: 10 MG, PRN, ORAL
     Route: 048
     Dates: start: 20020101
  5. XANAX [Suspect]
     Indication: PAIN
     Dosage: 1 MG, PRN, ORAL
     Route: 048
     Dates: start: 20020101

REACTIONS (5)
  - DEPRESSION [None]
  - DRUG DEPENDENCE [None]
  - DRUG WITHDRAWAL SYNDROME [None]
  - INTENTIONAL MISUSE [None]
  - SUICIDE ATTEMPT [None]
